FAERS Safety Report 4379804-X (Version None)
Quarter: 2004Q2

REPORT INFORMATION
  Report Type: 
  Country: None (occurrence: None)
  Receive Date: 20040614
  Receipt Date: 20040531
  Transmission Date: 20050107
  Serious: Yes (Other)
  Sender: FDA-Public Use
  Company Number: 2004037517

PATIENT
  Age: 66 Year
  Sex: Female
  Weight: 68.0396 kg

DRUGS (9)
  1. LIPITOR [Suspect]
     Indication: BLOOD CHOLESTEROL INCREASED
     Dosage: 10 MG (10 MG, 5 TIMES A WEEK), ORAL
     Route: 048
     Dates: start: 19990401, end: 20031101
  2. TEGASEROD (TERGASEROD) [Suspect]
     Indication: ILL-DEFINED DISORDER
     Dosage: ORAL
     Route: 048
     Dates: start: 20030901
  3. LEVOTHYROXINE SODIUM [Concomitant]
  4. DOCUSATE SODIUM [Concomitant]
  5. SENNA FRUIT [Concomitant]
  6. MAGNESIUM HYDROXIDE TAB [Concomitant]
  7. ASPIRIN [Concomitant]
  8. ACETAMINOPHEN [Concomitant]
  9. MULTIVITAMIN [Concomitant]

REACTIONS (8)
  - ABDOMINAL DISTENSION [None]
  - ARTHRALGIA [None]
  - CATARACT [None]
  - CONSTIPATION [None]
  - DIFFICULTY IN WALKING [None]
  - GASTROINTESTINAL DISORDER [None]
  - MYALGIA [None]
  - PELVIC PAIN [None]
